FAERS Safety Report 9155189 (Version 1)
Quarter: 2013Q1

REPORT INFORMATION
  Report Type: Report from Study
  Country: FR (occurrence: FR)
  Receive Date: 20130311
  Receipt Date: 20130311
  Transmission Date: 20140127
  Serious: Yes (Life-Threatening, Hospitalization, Other)
  Sender: FDA-Public Use
  Company Number: FR-JNJFOC-20121201335

PATIENT
  Age: 82 Year
  Sex: 0
  Weight: 71 kg

DRUGS (11)
  1. RIVAROXABAN [Suspect]
     Indication: ATRIAL FIBRILLATION
     Route: 048
     Dates: start: 20120914
  2. RIVAROXABAN [Suspect]
     Indication: CEREBROVASCULAR ACCIDENT PROPHYLAXIS
     Route: 048
     Dates: start: 20120914
  3. KARDEGIC [Suspect]
     Indication: PERIPHERAL ARTERY STENT INSERTION
     Dates: start: 20090708
  4. KARDEGIC [Suspect]
     Indication: ARTERITIS
     Dates: start: 20090708
  5. INEXIUM [Concomitant]
     Dates: start: 20120601
  6. EXFORGE [Concomitant]
     Dates: start: 20120425
  7. BISOPROLOL [Concomitant]
     Dates: start: 20090727
  8. LEVOTHYROX [Concomitant]
  9. CORTANCYL [Concomitant]
     Indication: TEMPORAL ARTERITIS
     Dates: start: 20120601
  10. FLUINDIONE [Concomitant]
     Dates: start: 200801, end: 20120912
  11. TAHOR [Concomitant]

REACTIONS (5)
  - Renal failure [Recovered/Resolved]
  - Gastrointestinal haemorrhage [Recovered/Resolved]
  - Rectal haemorrhage [Recovered/Resolved]
  - Shock haemorrhagic [Recovered/Resolved]
  - Diarrhoea haemorrhagic [Recovered/Resolved]
